FAERS Safety Report 11480129 (Version 3)
Quarter: 2015Q4

REPORT INFORMATION
  Report Type: Spontaneous
  Country: ES (occurrence: ES)
  Receive Date: 20150909
  Receipt Date: 20151013
  Transmission Date: 20160304
  Serious: Yes (Hospitalization, Other)
  Sender: FDA-Public Use
  Company Number: ES-GILEAD-2015-0170435

PATIENT
  Age: 45 Year
  Sex: Female

DRUGS (15)
  1. TRUVADA [Interacting]
     Active Substance: EMTRICITABINE\TENOFOVIR DISOPROXIL FUMARATE
     Dosage: UNK
     Route: 065
     Dates: start: 2014, end: 20150624
  2. NOLOTIL                            /00473101/ [Concomitant]
     Active Substance: METAMIZOLE
  3. IBUPROFEN. [Concomitant]
     Active Substance: IBUPROFEN
  4. ALDACTONE [Concomitant]
     Active Substance: SPIRONOLACTONE
  5. TIVICAY [Concomitant]
     Active Substance: DOLUTEGRAVIR SODIUM
     Indication: HIV INFECTION
     Dosage: 50 MG, QD
     Route: 048
  6. ATARAX [Concomitant]
     Active Substance: HYDROXYZINE\HYDROXYZINE HYDROCHLORIDE
  7. LORAZEPAM. [Concomitant]
     Active Substance: LORAZEPAM
  8. TRUVADA [Interacting]
     Active Substance: EMTRICITABINE\TENOFOVIR DISOPROXIL FUMARATE
     Indication: HIV INFECTION
     Dosage: 1 DF, QD
     Route: 048
     Dates: start: 20150720, end: 201508
  9. SEGURIL [Concomitant]
     Active Substance: FUROSEMIDE
  10. HARVONI [Suspect]
     Active Substance: LEDIPASVIR\SOFOSBUVIR
     Indication: HEPATITIS C
     Dosage: 1 DF, QD
     Route: 048
     Dates: start: 20150720, end: 201508
  11. DARUNAVIR W/RITONAVIR [Concomitant]
     Active Substance: DARUNAVIR\RITONAVIR
     Dosage: UNK
     Dates: start: 2014, end: 20150624
  12. BOI-K ASPARTICO [Concomitant]
  13. RIVOTRIL [Concomitant]
     Active Substance: CLONAZEPAM
  14. DEPRAX                             /00447702/ [Concomitant]
     Active Substance: TRAZODONE HYDROCHLORIDE
  15. PARACETAMOL [Concomitant]
     Active Substance: ACETAMINOPHEN

REACTIONS (2)
  - Drug interaction [Unknown]
  - Acute kidney injury [Recovering/Resolving]

NARRATIVE: CASE EVENT DATE: 20150818
